FAERS Safety Report 7374102-4 (Version None)
Quarter: 2011Q1

REPORT INFORMATION
  Report Type: 
  Country: None (occurrence: None)
  Receive Date: 20110315
  Receipt Date: 20110303
  Transmission Date: 20110831
  Serious: Yes (Hospitalization)
  Sender: FDA-Public Use
  Company Number: CIP10002690

PATIENT
  Age: 81 Year
  Sex: Female

DRUGS (6)
  1. ASPIRIN [Concomitant]
  2. PANTOPRAZOLE SODIUM [Concomitant]
  3. HYDRINE (HYDROXYCARBAMIDE) [Concomitant]
  4. ACTONEL [Suspect]
     Indication: OSTEOPOROSIS
     Dosage: 150 MG ONCE MONTHLY, ORAL
     Route: 048
     Dates: start: 20100704, end: 20101012
  5. COVERSYL (PERINDOPRIL) [Concomitant]
  6. AMLODIPINE BESYLATE [Concomitant]

REACTIONS (1)
  - ANGINA PECTORIS [None]
